FAERS Safety Report 21903884 (Version 3)
Quarter: 2023Q1

REPORT INFORMATION
  Report Type: Spontaneous
  Country: GB (occurrence: GB)
  Receive Date: 20230124
  Receipt Date: 20230222
  Transmission Date: 20230417
  Serious: Yes (Death, Hospitalization, Other)
  Sender: FDA-Public Use
  Company Number: GB-BRISTOL-MYERS SQUIBB COMPANY-2023-011057

PATIENT
  Age: 68 Year
  Sex: Male

DRUGS (6)
  1. LENALIDOMIDE [Suspect]
     Active Substance: LENALIDOMIDE
     Indication: Plasma cell myeloma
     Dosage: DAILY
     Route: 048
  2. APIXABAN [Suspect]
     Active Substance: APIXABAN
     Indication: Plasma cell myeloma
  3. DEXAMETHASONE [Suspect]
     Active Substance: DEXAMETHASONE
     Indication: Plasma cell myeloma
     Dosage: DAILY
     Route: 048
  4. CLOZAPINE [Suspect]
     Active Substance: CLOZAPINE
     Indication: Schizophrenia
     Route: 050
     Dates: start: 20220201, end: 20221216
  5. CLOZAPINE [Suspect]
     Active Substance: CLOZAPINE
     Route: 050
     Dates: start: 20221219
  6. DARATUMUMAB [Suspect]
     Active Substance: DARATUMUMAB
     Indication: Plasma cell myeloma

REACTIONS (3)
  - Off label use [Unknown]
  - Cardiac failure [Fatal]
  - Lower respiratory tract infection [Fatal]

NARRATIVE: CASE EVENT DATE: 20230110
